FAERS Safety Report 9375357 (Version 1)
Quarter: 2013Q2

REPORT INFORMATION
  Report Type: Spontaneous
  Country: FR (occurrence: FR)
  Receive Date: 20130628
  Receipt Date: 20130628
  Transmission Date: 20140414
  Serious: Yes (Death, Hospitalization, Other)
  Sender: FDA-Public Use
  Company Number: FR-TEVA-415329ISR

PATIENT
  Age: 82 Year
  Sex: Male

DRUGS (11)
  1. FUROSEMIDE TEVA 40 MG [Suspect]
     Dosage: SCORED TABLET
  2. CORDARONE 200 MG [Suspect]
     Dosage: 1 DOSAGE FORMS DAILY; FOR LONG-TERM
     Route: 048
     Dates: end: 20130525
  3. IMOVANE [Concomitant]
     Dosage: 1 DOSAGE FORMS DAILY;
     Route: 048
  4. TAHOR 40 MG, COATED TABLET [Concomitant]
     Dosage: 1 DOSAGE FORMS DAILY;
  5. KARDEGIC 75 MG, POWDER FOR ORAL SOLUTION, SACHETS [Concomitant]
     Dosage: 1 DOSAGE FORMS DAILY; FOR LONG-TERM
     Route: 048
  6. PRADAXA 110 MG, CAPSULE [Concomitant]
     Dosage: 2 DOSAGE FORMS DAILY; FOR LONG-TERM
     Route: 048
     Dates: end: 20130325
  7. ALDACTONE 25 MG, SCORED COATED TABLET [Concomitant]
     Dosage: 1 DOSAGE FORMS DAILY; FOR LONG-TERM
     Route: 048
  8. TRIATEC 1.25 MG, TABLET [Concomitant]
     Dosage: 3 DOSAGE FORMS DAILY; FOR LONG-TERM
     Route: 048
  9. CARDENSIEL 1.25 MG, COATED TABLET [Concomitant]
     Dosage: 1 DOSAGE FORMS DAILY; FOR LONG-TERM
     Route: 048
  10. XATRAL LP 10MG, SUSTAINED RELEASE TABLET [Concomitant]
     Dosage: 1 DOSAGE FORMS DAILY; FOR LONG-TERM
     Route: 048
  11. INEXIUM 20 MG, GASTRO-RESISTANT TABLET [Concomitant]
     Dosage: 1 DOSAGE FORMS DAILY; FOR LONG-TERM
     Route: 048

REACTIONS (8)
  - Cardiac failure [Fatal]
  - Pneumonia [Fatal]
  - Somnolence [Unknown]
  - Oedema peripheral [Unknown]
  - Dyspnoea [Unknown]
  - Hypotension [Unknown]
  - Renal failure [Unknown]
  - Candiduria [Unknown]
